FAERS Safety Report 9479473 (Version 1)
Quarter: 2013Q3

REPORT INFORMATION
  Report Type: Spontaneous
  Country: ES (occurrence: DE)
  Receive Date: 20130827
  Receipt Date: 20130827
  Transmission Date: 20140515
  Serious: Yes (Other)
  Sender: FDA-Public Use
  Company Number: DE-FRI-1000048136

PATIENT
  Age: 70 Year
  Sex: Female

DRUGS (3)
  1. ACLIDINIUM [Suspect]
     Route: 055
     Dates: start: 20130719, end: 20130729
  2. FORMOTEROL [Concomitant]
  3. NOVOPULMON [Concomitant]

REACTIONS (8)
  - Diplopia [Recovering/Resolving]
  - Vision blurred [Recovering/Resolving]
  - Headache [Recovering/Resolving]
  - Dysphagia [Recovering/Resolving]
  - Face oedema [Recovering/Resolving]
  - Local swelling [Recovering/Resolving]
  - Bone pain [Recovering/Resolving]
  - Muscle spasms [Recovering/Resolving]
